FAERS Safety Report 7375509-1 (Version None)
Quarter: 2011Q1

REPORT INFORMATION
  Report Type: 
  Country: None (occurrence: None)
  Receive Date: 20110325
  Receipt Date: 20110321
  Transmission Date: 20110831
  Serious: Yes (Hospitalization)
  Sender: FDA-Public Use
  Company Number: DE-SANOFI-AVENTIS-2011SA016729

PATIENT
  Age: 66 Year
  Sex: Female
  Weight: 87 kg

DRUGS (5)
  1. CYCLOPHOSPHAMIDE [Suspect]
     Indication: BREAST CANCER
     Route: 041
     Dates: start: 20110316, end: 20110316
  2. DEXAMETHASONE [Suspect]
     Route: 048
     Dates: start: 20110315, end: 20110315
  3. ZOFRAN [Suspect]
     Route: 042
     Dates: start: 20110316
  4. DEXAMETHASONE [Suspect]
     Route: 042
     Dates: start: 20110316, end: 20110316
  5. DOCETAXEL [Suspect]
     Indication: BREAST CANCER
     Route: 041
     Dates: start: 20110316, end: 20110316

REACTIONS (1)
  - PULMONARY HYPERTENSION [None]
